FAERS Safety Report 21172710 (Version 23)
Quarter: 2025Q1

REPORT INFORMATION
  Report Type: Report from Study
  Country: DE (occurrence: DE)
  Receive Date: 20220804
  Receipt Date: 20250129
  Transmission Date: 20250408
  Serious: Yes (Other)
  Sender: ROCHE
  Company Number: DE-ROCHE-2569354

PATIENT
  Age: 26 Year
  Sex: Female

DRUGS (13)
  1. OCREVUS [Suspect]
     Active Substance: OCRELIZUMAB
     Indication: Relapsing-remitting multiple sclerosis
     Dosage: 600 MG 196 DAYS
     Route: 040
     Dates: start: 20200205
  2. OCREVUS [Suspect]
     Active Substance: OCRELIZUMAB
     Route: 040
     Dates: start: 20200219
  3. OCREVUS [Suspect]
     Active Substance: OCRELIZUMAB
     Route: 040
     Dates: start: 20200826
  4. OCREVUS [Suspect]
     Active Substance: OCRELIZUMAB
     Route: 040
     Dates: start: 20210901
  5. OCREVUS [Suspect]
     Active Substance: OCRELIZUMAB
     Route: 040
     Dates: start: 20200205
  6. OCREVUS [Suspect]
     Active Substance: OCRELIZUMAB
     Route: 040
     Dates: start: 20200205
  7. OCREVUS [Suspect]
     Active Substance: OCRELIZUMAB
     Route: 040
  8. OCREVUS [Suspect]
     Active Substance: OCRELIZUMAB
     Route: 040
  9. COMIRNATY (TOZINAMERAN) [Suspect]
     Active Substance: TOZINAMERAN
     Indication: Product used for unknown indication
     Route: 065
  10. CORTISONE [Suspect]
     Active Substance: CORTISONE
     Indication: Relapsing-remitting multiple sclerosis
     Route: 040
     Dates: end: 20230105
  11. DIENOGEST\ETHINYL ESTRADIOL [Concomitant]
     Active Substance: DIENOGEST\ETHINYL ESTRADIOL
  12. CETIRIZINE [Concomitant]
     Active Substance: CETIRIZINE HYDROCHLORIDE
  13. DESFESOTERODINE SUCCINATE [Concomitant]
     Active Substance: DESFESOTERODINE SUCCINATE

REACTIONS (33)
  - Gastrointestinal infection [Unknown]
  - Dizziness [Recovered/Resolved]
  - Cough [Recovered/Resolved]
  - Headache [Recovered/Resolved]
  - Vomiting [Recovered/Resolved]
  - Parosmia [Not Recovered/Not Resolved]
  - Headache [Recovered/Resolved]
  - Nausea [Recovered/Resolved]
  - Optic neuritis [Recovered/Resolved]
  - Nausea [Recovered/Resolved]
  - Epicondylitis [Recovered/Resolved]
  - Dizziness [Recovered/Resolved]
  - Hyperhidrosis [Recovered/Resolved]
  - Seasonal allergy [Recovered/Resolved]
  - C-reactive protein increased [Recovered/Resolved]
  - Diarrhoea [Unknown]
  - Nasopharyngitis [Recovered/Resolved]
  - Ocular neoplasm [Recovered/Resolved]
  - Cardiovascular insufficiency [Unknown]
  - Taste disorder [Not Recovered/Not Resolved]
  - Fatigue [Recovered/Resolved]
  - Neurodermatitis [Recovered/Resolved]
  - Eczema [Unknown]
  - Aphasia [Not Recovered/Not Resolved]
  - Fatigue [Recovered/Resolved]
  - Headache [Recovered/Resolved]
  - Migraine [Not Recovered/Not Resolved]
  - COVID-19 [Recovered/Resolved]
  - Lacrimation increased [Recovered/Resolved]
  - Fatigue [Recovered/Resolved]
  - Headache [Recovered/Resolved]
  - Bone pain [Not Recovered/Not Resolved]
  - Hiccups [Not Recovered/Not Resolved]

NARRATIVE: CASE EVENT DATE: 20200205
